FAERS Safety Report 17570291 (Version 1)
Quarter: 2020Q1

REPORT INFORMATION
  Report Type: Spontaneous
  Country: US (occurrence: US)
  Receive Date: 20200323
  Receipt Date: 20200323
  Transmission Date: 20200409
  Serious: No
  Sender: FDA-Public Use
  Company Number: US-009507513-2002USA009908

PATIENT
  Age: 29 Year
  Sex: Female
  Weight: 54.42 kg

DRUGS (2)
  1. OXYCODONE [Suspect]
     Active Substance: OXYCODONE
     Dosage: UNK
  2. NEXPLANON [Suspect]
     Active Substance: ETONOGESTREL
     Indication: CONTRACEPTION
     Dosage: 3 YEARS, LEFT ARM - IMPLANT
     Route: 059
     Dates: start: 20160628

REACTIONS (5)
  - Menorrhagia [Not Recovered/Not Resolved]
  - Incorrect product administration duration [Unknown]
  - Drug hypersensitivity [Unknown]
  - Emotional disorder [Not Recovered/Not Resolved]
  - Pruritus [Unknown]

NARRATIVE: CASE EVENT DATE: 20190628
